FAERS Safety Report 10873986 (Version 1)
Quarter: 2015Q1

REPORT INFORMATION
  Report Type: Spontaneous
  Country: US (occurrence: US)
  Receive Date: 20150227
  Receipt Date: 20150227
  Transmission Date: 20150721
  Serious: No
  Sender: FDA-Public Use
  Company Number: US-009507513-1502USA004861

PATIENT
  Age: 64 Year
  Sex: Female

DRUGS (5)
  1. INTRON A [Suspect]
     Active Substance: INTERFERON ALFA-2B
     Dosage: UNK, IN A CLINICAL TRIAL
     Dates: start: 2011
  2. OCTREOTIDE [Concomitant]
     Active Substance: OCTREOTIDE
     Dosage: UNK
  3. INTRON A [Suspect]
     Active Substance: INTERFERON ALFA-2B
     Indication: LUNG NEOPLASM MALIGNANT
     Dosage: UNK, HALF DOSES OF THE PRODUCT
     Dates: start: 20141103
  4. BONIVA [Concomitant]
     Active Substance: IBANDRONATE SODIUM
     Dosage: UNK
  5. ATENOLOL. [Concomitant]
     Active Substance: ATENOLOL
     Dosage: UNK

REACTIONS (5)
  - Underdose [Unknown]
  - Drug administration error [Unknown]
  - Tremor [Not Recovered/Not Resolved]
  - Pulmonary mass [Not Recovered/Not Resolved]
  - Feeling cold [Not Recovered/Not Resolved]

NARRATIVE: CASE EVENT DATE: 20141103
